FAERS Safety Report 19603608 (Version 3)
Quarter: 2022Q3

REPORT INFORMATION
  Report Type: Spontaneous
  Country: PL (occurrence: PL)
  Receive Date: 20210724
  Receipt Date: 20220708
  Transmission Date: 20221027
  Serious: Yes (Other)
  Sender: FDA-Public Use
  Company Number: PL-MLMSERVICE-2021070929922451

PATIENT
  Age: 6 Year
  Sex: Male

DRUGS (8)
  1. ETOPOSIDE [Suspect]
     Active Substance: ETOPOSIDE
     Indication: Haemophagocytic lymphohistiocytosis
     Dosage: RECEIVED A FEW DOSES OF ETOPOSIDE
     Dates: start: 201808
  2. METHOTREXATE [Suspect]
     Active Substance: METHOTREXATE
     Indication: Prophylaxis against graft versus host disease
  3. CYCLOSPORINE [Suspect]
     Active Substance: CYCLOSPORINE
     Indication: Haemophagocytic lymphohistiocytosis
     Dates: start: 201803
  4. DEXAMETHASONE [Suspect]
     Active Substance: DEXAMETHASONE
     Indication: Haemophagocytic lymphohistiocytosis
     Dates: start: 201803
  5. CIDOFOVIR [Suspect]
     Active Substance: CIDOFOVIR
     Indication: Immunosuppression
  6. DEXAMETHASONE [Suspect]
     Active Substance: DEXAMETHASONE
     Indication: Epstein-Barr virus infection reactivation
     Dates: start: 201803
  7. ETOPOSIDE [Suspect]
     Active Substance: ETOPOSIDE
     Indication: Haemophagocytic lymphohistiocytosis
     Dates: start: 201803
  8. DEXAMETHASONE [Suspect]
     Active Substance: DEXAMETHASONE
     Indication: Haemophagocytic lymphohistiocytosis
     Dosage: WAS AGAIN GIVEN A FULL DOSE OF DEXAMETHASONE
     Dates: start: 201808

REACTIONS (6)
  - Renal impairment [Unknown]
  - Hepatic failure [Unknown]
  - Cytomegalovirus viraemia [Recovered/Resolved]
  - Off label use [Unknown]
  - Respiratory failure [Unknown]
  - Immune thrombocytopenia [Unknown]

NARRATIVE: CASE EVENT DATE: 20180101
